FAERS Safety Report 4747912-7 (Version None)
Quarter: 2005Q3

REPORT INFORMATION
  Report Type: 
  Country: None (occurrence: None)
  Receive Date: 20050816
  Receipt Date: 20050601
  Transmission Date: 20060218
  Serious: Yes (Other)
  Sender: FDA-Public Use
  Company Number: S05-CAN-02846-01

PATIENT
  Age: 38 Year
  Sex: Female

DRUGS (4)
  1. CELEXA [Suspect]
     Dosage: 30 MG DAILY PO
     Route: 048
  2. NOVO-MINOCYCLINE (MINOCYCLINE HYDROCHLORIDE) [Suspect]
     Dosage: 100 MG DAILY
  3. CALCIUM GLUCONATE [Concomitant]
  4. MULTI-VITAMINS [Concomitant]

REACTIONS (2)
  - CONTUSION [None]
  - TONGUE BLACK HAIRY [None]
